FAERS Safety Report 15601744 (Version 1)
Quarter: 2018Q4

REPORT INFORMATION
  Report Type: Spontaneous
  Country: US (occurrence: US)
  Receive Date: 20181109
  Receipt Date: 20181109
  Transmission Date: 20190205
  Serious: No
  Sender: FDA-Public Use
  Company Number: None

PATIENT
  Age: 35 Year
  Sex: Female
  Weight: 90 kg

DRUGS (1)
  1. AIMOVIG [Suspect]
     Active Substance: ERENUMAB-AOOE
     Indication: OCCIPITAL NEURALGIA
     Dosage: ?          QUANTITY:1 INJECTION(S);OTHER FREQUENCY:ONCE PER MONTH;?
     Route: 030
     Dates: start: 20181005, end: 20181102

REACTIONS (8)
  - Constipation [None]
  - Depression [None]
  - Mental disorder [None]
  - Alopecia [None]
  - Anxiety [None]
  - Seborrhoea [None]
  - Therapy cessation [None]
  - Panic reaction [None]

NARRATIVE: CASE EVENT DATE: 20181005
